FAERS Safety Report 5254386-9 (Version None)
Quarter: 2007Q1

REPORT INFORMATION
  Report Type: 
  Country: None (occurrence: None)
  Receive Date: 20070302
  Receipt Date: 20070222
  Transmission Date: 20070707
  Serious: Yes (Other)
  Sender: FDA-Public Use
  Company Number: US-ROCHE-483959

PATIENT
  Age: 31 Year
  Sex: Female

DRUGS (7)
  1. PEGASYS [Suspect]
     Dosage: 180MCG / WEEK
     Route: 065
     Dates: start: 20070131
  2. RIBAVIRIN [Suspect]
     Route: 065
     Dates: start: 20070131
  3. VALIUM [Suspect]
     Indication: DRUG USE FOR UNKNOWN INDICATION
     Route: 065
  4. EFFEXOR [Concomitant]
     Indication: DRUG USE FOR UNKNOWN INDICATION
  5. TRAZODONE HCL [Concomitant]
     Indication: DRUG USE FOR UNKNOWN INDICATION
  6. SEROQUEL [Concomitant]
     Indication: DRUG USE FOR UNKNOWN INDICATION
  7. AMBIEN [Concomitant]
     Indication: DRUG USE FOR UNKNOWN INDICATION

REACTIONS (8)
  - ALOPECIA [None]
  - AMNESIA [None]
  - ARTHRALGIA [None]
  - DECREASED APPETITE [None]
  - HALLUCINATION, AUDITORY [None]
  - INSOMNIA [None]
  - NIGHTMARE [None]
  - WEIGHT DECREASED [None]
